FAERS Safety Report 25741381 (Version 1)
Quarter: 2025Q3

REPORT INFORMATION
  Report Type: Report from Study
  Country: EU (occurrence: EU)
  Receive Date: 20250829
  Receipt Date: 20250829
  Transmission Date: 20251021
  Serious: Yes (Other)
  Sender: DAIICHI
  Company Number: EU-AstraZeneca-CH-00935179A

PATIENT
  Sex: Female

DRUGS (4)
  1. ENHERTU [Suspect]
     Active Substance: FAM-TRASTUZUMAB DERUXTECAN-NXKI
     Indication: Product used for unknown indication
     Dosage: 5.4 MG/KG, ONCE EVERY 3 WK
     Route: 065
  2. ENHERTU [Suspect]
     Active Substance: FAM-TRASTUZUMAB DERUXTECAN-NXKI
     Dosage: 4 MG/KG, ONCE EVERY 3 WK
     Route: 065
  3. ONDANSETRON [ONDANSETRON HYDROCHLORIDE DIHYDRATE] [Concomitant]
     Indication: Product used for unknown indication
     Route: 065
     Dates: start: 202102, end: 202312
  4. AACIDEXAM [DEXAMETHASONE] [Concomitant]
     Indication: Product used for unknown indication
     Route: 065

REACTIONS (2)
  - Haematotoxicity [Unknown]
  - Malignant neoplasm progression [Unknown]
